FAERS Safety Report 8601504-8 (Version None)
Quarter: 2012Q3

REPORT INFORMATION
  Report Type: 
  Country: None (occurrence: None)
  Receive Date: 20120817
  Receipt Date: 20111013
  Transmission Date: 20120928
  Serious: No
  Sender: FDA-Public Use
  Company Number: US-BRISTOL-MYERS SQUIBB COMPANY-16159436

PATIENT
  Sex: Female

DRUGS (1)
  1. SPRYCEL [Suspect]
     Indication: CHRONIC MYELOID LEUKAEMIA
     Dosage: DOSE STOPPED FOR 2 DAYS AND RESTARTED ON 13OCT11

REACTIONS (3)
  - NECK PAIN [None]
  - VOMITING [None]
  - DIARRHOEA [None]
